FAERS Safety Report 5888458-2 (Version None)
Quarter: 2008Q3

REPORT INFORMATION
  Report Type: 
  Country: None (occurrence: None)
  Receive Date: 20080918
  Receipt Date: 20080915
  Transmission Date: 20090109
  Serious: Yes (Hospitalization)
  Sender: FDA-Public Use
  Company Number: FR-PFIZER INC-2008078026

PATIENT
  Age: 59 Year
  Sex: Female

DRUGS (6)
  1. TAHOR [Suspect]
     Dates: start: 20080101
  2. AMLOD [Interacting]
  3. ATENOLOL [Concomitant]
  4. FUROSEMIDE [Concomitant]
  5. EUPRESSYL [Concomitant]
  6. ALL OTHER THERAPEUTIC PRODUCTS [Concomitant]

REACTIONS (2)
  - DRUG INTERACTION [None]
  - RHABDOMYOLYSIS [None]
